FAERS Safety Report 25682715 (Version 1)
Quarter: 2025Q3

REPORT INFORMATION
  Report Type: Spontaneous
  Country: US (occurrence: None)
  Receive Date: 20250814
  Receipt Date: 20250814
  Transmission Date: 20251021
  Serious: Yes (Death)
  Sender: FDA-CTU
  Company Number: None

PATIENT
  Age: 57 Year
  Sex: Male
  Weight: 67 kg

DRUGS (6)
  1. CEFEPIME [Suspect]
     Active Substance: CEFEPIME HYDROCHLORIDE
     Indication: Sepsis
     Dosage: FREQUENCY : 3 TIMES A DAY;?
     Route: 042
     Dates: start: 20250717, end: 20250717
  2. SODIUM CHLORIDE [Concomitant]
     Active Substance: SODIUM CHLORIDE
     Dates: start: 20250716, end: 20250717
  3. Buspirone 7.5mg tab [Concomitant]
     Dates: start: 20250717, end: 20250717
  4. Ceftriaxone 1g IM [Concomitant]
     Dates: start: 20250716, end: 20250716
  5. Iopamidol 370mg/mL; 100mL [Concomitant]
     Dates: start: 20250716, end: 20250716
  6. Vancomycin 1g IV q12hr [Concomitant]
     Dates: start: 20250717, end: 20250717

REACTIONS (6)
  - Dyspnoea [None]
  - Flushing [None]
  - Hypersensitivity [None]
  - Acute respiratory failure [None]
  - Hypotension [None]
  - Cardiac arrest [None]

NARRATIVE: CASE EVENT DATE: 20250717
